FAERS Safety Report 9973008 (Version 2)
Quarter: 2014Q1

REPORT INFORMATION
  Report Type: Spontaneous
  Country: US (occurrence: DE)
  Receive Date: 20140306
  Receipt Date: 20140325
  Transmission Date: 20141002
  Serious: Yes (Hospitalization)
  Sender: FDA-Public Use
  Company Number: DE-PFIZER INC-2014062792

PATIENT
  Age: 22 Year
  Sex: Male

DRUGS (5)
  1. CITALOPRAM [Suspect]
     Dosage: 20 MG, DAILY
     Dates: start: 2012, end: 2012
  2. CITALOPRAM [Suspect]
     Dosage: 40 MG, DAILY
     Dates: start: 2012, end: 2012
  3. CITALOPRAM [Suspect]
     Dosage: 60 MG, DAILY
     Dates: start: 2012
  4. SERTRALINE HCL [Suspect]
     Dosage: 50 MG, DAILY
     Dates: start: 2012, end: 2012
  5. MIRTAZAPINE [Concomitant]
     Dosage: 30 MG, DAILY, WEEK 8
     Dates: start: 201201

REACTIONS (1)
  - Psychotic disorder [Recovered/Resolved]
